FAERS Safety Report 7671904-1 (Version None)
Quarter: 2011Q3

REPORT INFORMATION
  Report Type: 
  Country: None (occurrence: None)
  Receive Date: 20110809
  Receipt Date: 20110722
  Transmission Date: 20111222
  Serious: Yes (Hospitalization)
  Sender: FDA-Public Use
  Company Number: US-GLAXOSMITHKLINE-A0873889A

PATIENT
  Age: 39 Year
  Sex: Female

DRUGS (7)
  1. INSULIN [Concomitant]
  2. LORAZEPAM [Concomitant]
  3. LISINOPRIL [Concomitant]
  4. EFFEXOR [Concomitant]
  5. METFORMIN HCL [Concomitant]
  6. AVANDIA [Suspect]
     Indication: TYPE 2 DIABETES MELLITUS
     Dosage: 8MG PER DAY
     Route: 048
     Dates: start: 20000101, end: 20080101
  7. GEMFIBROZIL [Concomitant]

REACTIONS (2)
  - CEREBROVASCULAR ACCIDENT [None]
  - CEREBRAL INFARCTION [None]
